FAERS Safety Report 7903334-9 (Version None)
Quarter: 2011Q4

REPORT INFORMATION
  Report Type: 
  Country: None (occurrence: None)
  Receive Date: 20111109
  Receipt Date: 20111104
  Transmission Date: 20120403
  Serious: No
  Sender: FDA-Public Use
  Company Number: US-PFIZER INC-2011271196

PATIENT
  Sex: Female

DRUGS (1)
  1. ARTHROTEC [Suspect]
     Dosage: 75 MG, UNK

REACTIONS (1)
  - SWELLING [None]
